FAERS Safety Report 5056747-X (Version None)
Quarter: 2006Q2

REPORT INFORMATION
  Report Type: 
  Country: None (occurrence: None)
  Receive Date: 20060616
  Receipt Date: 20060328
  Transmission Date: 20061013
  Serious: No
  Sender: FDA-Public Use
  Company Number: 2006US000429

PATIENT
  Age: 86 Year
  Sex: Female

DRUGS (5)
  1. VESICARE [Suspect]
     Dosage: SEE IMAGE
     Route: 048
     Dates: start: 20060201
  2. VESICARE [Suspect]
     Dosage: SEE IMAGE
     Route: 048
     Dates: start: 20060215
  3. LEVOXYL [Concomitant]
  4. FOSAMAX [Concomitant]
  5. ALBUTEROL [Concomitant]

REACTIONS (1)
  - DYSPEPSIA [None]
